FAERS Safety Report 12882067 (Version 6)
Quarter: 2021Q2

REPORT INFORMATION
  Report Type: Report from Study
  Country: US (occurrence: US)
  Receive Date: 20161025
  Receipt Date: 20210421
  Transmission Date: 20210716
  Serious: Yes (Other)
  Sender: FDA-Public Use
  Company Number: US-JNJFOC-20161008000

PATIENT
  Age: 89 Year
  Sex: Female

DRUGS (17)
  1. IMBRUVICA [Suspect]
     Active Substance: IBRUTINIB
     Route: 048
     Dates: start: 20160921
  2. IMBRUVICA [Suspect]
     Active Substance: IBRUTINIB
     Route: 048
     Dates: start: 2016
  3. METOPROLOL TARTRATE. [Concomitant]
     Active Substance: METOPROLOL TARTRATE
     Indication: CARDIAC DISORDER
  4. ALLOPURINOL. [Concomitant]
     Active Substance: ALLOPURINOL
  5. ZOFRAN [Concomitant]
     Active Substance: ONDANSETRON HYDROCHLORIDE
  6. IMBRUVICA [Suspect]
     Active Substance: IBRUTINIB
     Route: 048
     Dates: start: 20160926, end: 20160930
  7. CARTIA [Concomitant]
  8. IMBRUVICA [Suspect]
     Active Substance: IBRUTINIB
     Indication: CHRONIC LYMPHOCYTIC LEUKAEMIA
     Route: 048
     Dates: start: 20160921, end: 20160925
  9. TRAVATAN [Concomitant]
     Active Substance: TRAVOPROST
  10. FUROSEMIDE. [Concomitant]
     Active Substance: FUROSEMIDE
  11. IMBRUVICA [Suspect]
     Active Substance: IBRUTINIB
     Route: 048
     Dates: start: 20161028, end: 20161226
  12. XARELTO [Suspect]
     Active Substance: RIVAROXABAN
     Indication: CARDIAC DISORDER
     Route: 048
  13. SYNTHROID [Concomitant]
     Active Substance: LEVOTHYROXINE SODIUM
  14. ONDANSETRON [Concomitant]
     Active Substance: ONDANSETRON
  15. DILTIAZEM. [Concomitant]
     Active Substance: DILTIAZEM
     Indication: CARDIAC DISORDER
  16. PRESERVISION [Concomitant]
     Active Substance: MINERALS\VITAMINS
  17. LEVOBUNOLOL [Concomitant]
     Active Substance: LEVOBUNOLOL

REACTIONS (17)
  - Contusion [Not Recovered/Not Resolved]
  - Purpura [Unknown]
  - Dry skin [Unknown]
  - Incorrect dose administered [Recovered/Resolved]
  - Off label use [Recovered/Resolved]
  - Pallor [Recovering/Resolving]
  - Pain in extremity [Unknown]
  - Cellulitis [Recovered/Resolved]
  - Arthritis [Not Recovered/Not Resolved]
  - Weight increased [Unknown]
  - Onychoclasis [Unknown]
  - Joint swelling [Unknown]
  - Application site bruise [Unknown]
  - Rotator cuff syndrome [Not Recovered/Not Resolved]
  - Haemoglobin decreased [Recovering/Resolving]
  - Skin irritation [Unknown]
  - Rash papular [Not Recovered/Not Resolved]

NARRATIVE: CASE EVENT DATE: 20160921
